FAERS Safety Report 10126291 (Version 2)
Quarter: 2015Q1

REPORT INFORMATION
  Report Type: Other
  Country: None (occurrence: US)
  Receive Date: 20140427
  Receipt Date: 20150223
  Transmission Date: 20150720
  Serious: Yes (Hospitalization, Other)
  Sender: FDA-Public Use
  Company Number: US-GSKPPD-2014GSK030259

PATIENT
  Age: 60 Year
  Sex: Male

DRUGS (4)
  1. AVANDIA [Suspect]
     Active Substance: ROSIGLITAZONE MALEATE
     Indication: DIABETES MELLITUS
     Dosage: AVANDIA WAS NOT LISTED AMONG THE PATIENTS RECORDS REVIEWED.
     Route: 048
  2. PLENDIL [Concomitant]
     Active Substance: FELODIPINE
  3. AVAPRO [Concomitant]
     Active Substance: IRBESARTAN
  4. METOPROLOL [Concomitant]
     Active Substance: METOPROLOL

REACTIONS (2)
  - Cerebral infarction [Unknown]
  - Myocardial infarction [Unknown]

NARRATIVE: CASE EVENT DATE: 20020705
